FAERS Safety Report 9675391 (Version 2)
Quarter: 2013Q4

REPORT INFORMATION
  Report Type: Spontaneous
  Country: US (occurrence: US)
  Receive Date: 20131107
  Receipt Date: 20131122
  Transmission Date: 20140711
  Serious: No
  Sender: FDA-Public Use
  Company Number: US-PFIZER INC-2013314855

PATIENT
  Age: 9 Month
  Sex: Female

DRUGS (2)
  1. ADVIL [Suspect]
     Indication: PYREXIA
     Dosage: UNK
     Dates: start: 20131103
  2. TYLENOL [Suspect]
     Indication: PYREXIA
     Dosage: UNK
     Dates: start: 201311

REACTIONS (2)
  - Rash generalised [Not Recovered/Not Resolved]
  - Vomiting [Unknown]
